FAERS Safety Report 9773807 (Version 1)
Quarter: 2013Q4

REPORT INFORMATION
  Report Type: Report from Study
  Country: FR (occurrence: FR)
  Receive Date: 20131220
  Receipt Date: 20131220
  Transmission Date: 20140711
  Serious: Yes (Hospitalization)
  Sender: FDA-Public Use
  Company Number: FR-ROCHE-1317434

PATIENT
  Sex: 0
  Weight: 72 kg

DRUGS (3)
  1. MYCOPHENOLATE MOFETIL [Suspect]
     Indication: NON-HODGKIN^S LYMPHOMA
     Route: 048
     Dates: start: 20121029
  2. CERTICAN [Suspect]
     Indication: NON-HODGKIN^S LYMPHOMA
     Route: 048
     Dates: start: 20121103, end: 20130405
  3. CORTANCYL [Suspect]
     Indication: NON-HODGKIN^S LYMPHOMA
     Route: 048
     Dates: start: 20121030

REACTIONS (3)
  - Pneumonia viral [Recovered/Resolved]
  - Lung infection [Recovered/Resolved]
  - Acute respiratory distress syndrome [Recovered/Resolved]
